FAERS Safety Report 6372885-3 (Version None)
Quarter: 2009Q3

REPORT INFORMATION
  Report Type: 
  Country: None (occurrence: None)
  Receive Date: 20090924
  Receipt Date: 20081205
  Transmission Date: 20100115
  Serious: No
  Sender: FDA-Public Use
  Company Number: US-ASTRAZENECA-2008UW27199

PATIENT
  Age: 34 Year
  Sex: Male

DRUGS (3)
  1. SEROQUEL [Suspect]
     Route: 048
  2. LAMICTAL [Concomitant]
  3. PROSAC [Concomitant]

REACTIONS (3)
  - AMNESIA [None]
  - MOOD SWINGS [None]
  - TREMOR [None]
